FAERS Safety Report 25395977 (Version 1)
Quarter: 2025Q2

REPORT INFORMATION
  Report Type: Spontaneous
  Country: US (occurrence: US)
  Receive Date: 20250604
  Receipt Date: 20250604
  Transmission Date: 20250717
  Serious: Yes (Hospitalization)
  Sender: INSUD PHARMA
  Company Number: US-INSUD PHARMA-2505US04185

PATIENT

DRUGS (1)
  1. SLYND [Suspect]
     Active Substance: DROSPIRENONE
     Indication: Polycystic ovarian syndrome
     Dosage: 1 DOSAGE FORM, QD
     Route: 048
     Dates: start: 2022, end: 202411

REACTIONS (5)
  - Anaemia [Recovered/Resolved]
  - Abnormal withdrawal bleeding [Recovered/Resolved]
  - Dyspnoea [Recovered/Resolved]
  - Dizziness [Recovered/Resolved]
  - Product prescribing issue [Unknown]

NARRATIVE: CASE EVENT DATE: 20220101
